FAERS Safety Report 23759471 (Version 1)
Quarter: 2024Q2

REPORT INFORMATION
  Report Type: Spontaneous
  Country: US (occurrence: None)
  Receive Date: 20240418
  Receipt Date: 20240418
  Transmission Date: 20240716
  Serious: No
  Sender: FDA-Public Use
  Company Number: US-ROCHE-3392729

PATIENT
  Sex: Female

DRUGS (3)
  1. ESBRIET [Suspect]
     Active Substance: PIRFENIDONE
     Indication: Idiopathic pulmonary fibrosis
     Route: 048
     Dates: start: 201902
  2. TYVASO [Concomitant]
     Active Substance: TREPROSTINIL
  3. OPSUMIT [Concomitant]
     Active Substance: MACITENTAN

REACTIONS (2)
  - COVID-19 [Recovering/Resolving]
  - Productive cough [Unknown]
